FAERS Safety Report 5927691-8 (Version None)
Quarter: 2008Q4

REPORT INFORMATION
  Report Type: 
  Country: None (occurrence: None)
  Receive Date: 20081023
  Receipt Date: 20081014
  Transmission Date: 20090506
  Serious: No
  Sender: FDA-Public Use
  Company Number: US-ASTRAZENECA-2008UW22561

PATIENT
  Age: 51 Year
  Sex: Female

DRUGS (2)
  1. ARIMIDEX [Suspect]
     Route: 048
     Dates: start: 20080901
  2. VITAMIN D [Concomitant]

REACTIONS (2)
  - ARTHRALGIA [None]
  - MOOD SWINGS [None]
